FAERS Safety Report 14744771 (Version 1)
Quarter: 2018Q2

REPORT INFORMATION
  Report Type: Spontaneous
  Country: US (occurrence: US)
  Receive Date: 20180405
  Receipt Date: 20180405
  Transmission Date: 20180711
  Serious: No
  Sender: FDA-Public Use
  Company Number: None

PATIENT
  Age: 72 Year
  Sex: Male
  Weight: 79.38 kg

DRUGS (1)
  1. ATORVASTATIN CALCIUM. [Suspect]
     Active Substance: ATORVASTATIN CALCIUM
     Indication: BLOOD CHOLESTEROL
     Dosage: ?          QUANTITY:40 MG MILLIGRAM(S);OTHER FREQUENCY:4 TIMES/WK;?
     Route: 048
     Dates: start: 201801, end: 20180226

REACTIONS (3)
  - Neck pain [None]
  - Chest pain [None]
  - Musculoskeletal pain [None]

NARRATIVE: CASE EVENT DATE: 201802
